FAERS Safety Report 19377252 (Version 1)
Quarter: 2021Q2

REPORT INFORMATION
  Report Type: Spontaneous
  Country: FR (occurrence: FR)
  Receive Date: 20210604
  Receipt Date: 20210604
  Transmission Date: 20210717
  Serious: Yes (Hospitalization)
  Sender: FDA-Public Use
  Company Number: FR-MYLANLABS-2021M1032385

PATIENT
  Age: 60 Year
  Sex: Female

DRUGS (2)
  1. PREGABALIN MYLAN 50 MG HARD CAPSULES [Suspect]
     Active Substance: PREGABALIN
     Indication: NEURALGIA
     Dosage: 50 MILLIGRAM, BID
     Route: 048
     Dates: start: 20201126, end: 20201202
  2. METHYLPREDNISOLONE MYLAN 1 G, POUDRE POUR SOLUTION INJECTABLE (IV) [Suspect]
     Active Substance: METHYLPREDNISOLONE
     Indication: MYELITIS
     Dosage: 1 GRAM, QD
     Route: 042
     Dates: start: 20201128, end: 20201202

REACTIONS (2)
  - Hepatic cytolysis [Recovering/Resolving]
  - Cholestasis [Recovering/Resolving]

NARRATIVE: CASE EVENT DATE: 20201202
